FAERS Safety Report 23700685 (Version 1)
Quarter: 2024Q2

REPORT INFORMATION
  Report Type: Spontaneous
  Country: US (occurrence: US)
  Receive Date: 20240403
  Receipt Date: 20240403
  Transmission Date: 20240716
  Serious: No
  Sender: FDA-Public Use
  Company Number: US-862174955-ML2024-01912

PATIENT
  Age: 23 Year
  Sex: Female
  Weight: 88.45 kg

DRUGS (3)
  1. CLOBAZAM [Suspect]
     Active Substance: CLOBAZAM
     Indication: Seizure
     Dosage: ONCE A DAY AT BEDTIME/SHE WAS ON 10MG FOR 02 AND A HALF TO 03 WEEKS AS PRESCRIBED BY PHYSICIAN
     Route: 048
  2. CLOBAZAM [Suspect]
     Active Substance: CLOBAZAM
     Dosage: SHE WAS ON 5MG FOR ONE WEEK
     Route: 048
  3. LAMICTAL [Concomitant]
     Active Substance: LAMOTRIGINE
     Indication: Seizure

REACTIONS (5)
  - Balance disorder [Unknown]
  - Eye movement disorder [Unknown]
  - Gait disturbance [Unknown]
  - Speech disorder [Unknown]
  - Somnolence [Unknown]
